FAERS Safety Report 26039923 (Version 1)
Quarter: 2025Q4

REPORT INFORMATION
  Report Type: Report from Study
  Country: US (occurrence: US)
  Receive Date: 20251113
  Receipt Date: 20251113
  Transmission Date: 20260117
  Serious: Yes (Other)
  Sender: ALEXION PHARMACEUTICALS
  Company Number: US-ASTRAZENECA-202511NAM006605US

PATIENT
  Age: 63 Year
  Sex: Female

DRUGS (2)
  1. STRENSIQ [Suspect]
     Active Substance: ASFOTASE ALFA
     Indication: Phosphorus metabolism disorder
     Dosage: 2 MILLIGRAM/KILOGRAM, Q3W
     Route: 065
  2. STRENSIQ [Suspect]
     Active Substance: ASFOTASE ALFA
     Dosage: 2 MILLIGRAM/KILOGRAM, Q3W
     Route: 065

REACTIONS (12)
  - Diverticulitis [Unknown]
  - Rheumatoid arthritis [Unknown]
  - Abdominal pain upper [Unknown]
  - Pain in extremity [Unknown]
  - Arthralgia [Unknown]
  - Dry eye [Unknown]
  - Overlap syndrome [Unknown]
  - Peripheral nerve lesion [Unknown]
  - Dysuria [Unknown]
  - Constipation [Unknown]
  - Muscle spasms [Unknown]
  - Irritable bowel syndrome [Unknown]
